FAERS Safety Report 5735172-X (Version None)
Quarter: 2008Q2

REPORT INFORMATION
  Report Type: 
  Country: None (occurrence: None)
  Receive Date: 20080512
  Receipt Date: 20080501
  Transmission Date: 20081010
  Serious: Yes (Hospitalization, Other)
  Sender: FDA-Public Use
  Company Number: US-ELI_LILLY_AND_COMPANY-US200805000199

PATIENT
  Sex: Female

DRUGS (3)
  1. FORTEO [Suspect]
     Indication: OSTEOPOROSIS
     Dates: start: 20070401
  2. LIPITOR [Concomitant]
  3. ATIVAN [Concomitant]

REACTIONS (7)
  - CYSTITIS [None]
  - FALL [None]
  - FEAR [None]
  - GAIT DISTURBANCE [None]
  - HAEMORRHAGE [None]
  - HIP FRACTURE [None]
  - STOMACH DISCOMFORT [None]
